FAERS Safety Report 25800428 (Version 5)
Quarter: 2025Q4

REPORT INFORMATION
  Report Type: Spontaneous
  Country: HK (occurrence: HK)
  Receive Date: 20250915
  Receipt Date: 20251031
  Transmission Date: 20260117
  Serious: Yes (Other)
  Sender: MERCK SHARP & DOHME LLC
  Company Number: HK-009507513-2328292

PATIENT
  Age: 70 Year
  Sex: Male

DRUGS (1)
  1. JANUMET XR [Suspect]
     Active Substance: METFORMIN HYDROCHLORIDE\SITAGLIPTIN PHOSPHATE
     Indication: Diabetes mellitus
     Dosage: 100/1000 MG, ONCE DAILY
     Route: 048
     Dates: start: 202506

REACTIONS (4)
  - Diabetes mellitus inadequate control [Unknown]
  - Drug ineffective [Unknown]
  - Product residue present [Unknown]
  - Product solubility abnormal [Unknown]

NARRATIVE: CASE EVENT DATE: 20250101
